FAERS Safety Report 11588871 (Version 1)
Quarter: 2015Q4

REPORT INFORMATION
  Report Type: Report from Study
  Country: US (occurrence: US)
  Receive Date: 20151002
  Receipt Date: 20151002
  Transmission Date: 20160304
  Serious: Yes (Hospitalization)
  Sender: FDA-Public Use
  Company Number: US-BIOGENIDEC-2015BI132637

PATIENT
  Sex: Female

DRUGS (9)
  1. COLESTIPOL [Concomitant]
     Active Substance: COLESTIPOL
  2. ZOLPIDEM [Concomitant]
     Active Substance: ZOLPIDEM\ZOLPIDEM TARTRATE
  3. TECFIDERA [Suspect]
     Active Substance: DIMETHYL FUMARATE
     Indication: MULTIPLE SCLEROSIS
     Route: 048
     Dates: start: 20130611, end: 20130617
  4. OXYBUTYNIN [Concomitant]
     Active Substance: OXYBUTYNIN
  5. TECFIDERA [Suspect]
     Active Substance: DIMETHYL FUMARATE
     Indication: MULTIPLE SCLEROSIS
     Route: 048
     Dates: start: 20130618
  6. TRAZODONE [Concomitant]
     Active Substance: TRAZODONE HYDROCHLORIDE
  7. AMINOPYRIDINE [Concomitant]
     Active Substance: DALFAMPRIDINE
  8. BACLOFEN. [Concomitant]
     Active Substance: BACLOFEN
  9. METOPROLOL [Concomitant]
     Active Substance: METOPROLOL

REACTIONS (2)
  - Central nervous system lesion [Unknown]
  - Compression fracture [Unknown]
